FAERS Safety Report 23932248 (Version 1)
Quarter: 2024Q2

REPORT INFORMATION
  Report Type: Report from Study
  Country: AR (occurrence: AR)
  Receive Date: 20240603
  Receipt Date: 20240603
  Transmission Date: 20240716
  Serious: Yes (Other)
  Sender: FDA-Public Use
  Company Number: AR-AKCEA THERAPEUTICS, INC.-2024IS005335

PATIENT

DRUGS (1)
  1. TEGSEDI [Suspect]
     Active Substance: INOTERSEN SODIUM
     Indication: Hereditary neuropathic amyloidosis
     Dosage: 284 MILLIGRAM, QW
     Route: 058
     Dates: start: 20191008

REACTIONS (5)
  - Burns third degree [Not Recovered/Not Resolved]
  - Mental disorder [Not Recovered/Not Resolved]
  - Tremor [Not Recovered/Not Resolved]
  - Gastritis [Not Recovered/Not Resolved]
  - Oesophageal pain [Not Recovered/Not Resolved]
